FAERS Safety Report 12862422 (Version 2)
Quarter: 2016Q4

REPORT INFORMATION
  Report Type: Spontaneous
  Country: PL (occurrence: PL)
  Receive Date: 20161019
  Receipt Date: 20161102
  Transmission Date: 20170207
  Serious: Yes (Other)
  Sender: FDA-Public Use
  Company Number: PL-TEVA-703298ISR

PATIENT
  Age: 50 Year
  Sex: Female

DRUGS (5)
  1. G-CSF [Suspect]
     Active Substance: GRANULOCYTE COLONY-STIMULATING FACTOR NOS
     Dosage: 2 CYCLE OF CHEMOTHERAPY; 5 AMPULES - 30 MLN IU
  2. CYCLOPHOSPHAMIDE. [Concomitant]
     Active Substance: CYCLOPHOSPHAMIDE
  3. G-CSF [Suspect]
     Active Substance: GRANULOCYTE COLONY-STIMULATING FACTOR NOS
     Dosage: 3 CYCLE OF CHEMOTHERAPY
  4. DOCETAXEL. [Concomitant]
     Active Substance: DOCETAXEL
  5. DOXORUBICIN [Concomitant]
     Active Substance: DOXORUBICIN

REACTIONS (5)
  - Oral candidiasis [Unknown]
  - Bone pain [Unknown]
  - Vertigo [Unknown]
  - Loss of consciousness [Unknown]
  - Nausea [Unknown]
